FAERS Safety Report 12236833 (Version 1)
Quarter: 2016Q2

REPORT INFORMATION
  Report Type: Spontaneous
  Country: US (occurrence: US)
  Receive Date: 20160405
  Receipt Date: 20160405
  Transmission Date: 20160815
  Serious: Yes (Hospitalization)
  Sender: FDA-Public Use
  Company Number: US-BEH-2016060621

PATIENT
  Age: 6 Year
  Sex: Female
  Weight: 20 kg

DRUGS (15)
  1. PROGRAF [Concomitant]
     Active Substance: TACROLIMUS\TACROLIMUS ANHYDROUS
  2. LOPERAMIDE [Concomitant]
     Active Substance: LOPERAMIDE
  3. BACTRIM DS [Concomitant]
     Active Substance: SULFAMETHOXAZOLE\TRIMETHOPRIM
  4. HIZENTRA [Suspect]
     Active Substance: HUMAN IMMUNOGLOBULIN G
     Indication: HYPOGAMMAGLOBULINAEMIA
     Dosage: 2 GM 10 ML VIAL
     Route: 058
  5. DIPHENHYDRAMINE. [Concomitant]
     Active Substance: DIPHENHYDRAMINE
  6. NYSTATIN. [Concomitant]
     Active Substance: NYSTATIN
  7. MAGONATE [Concomitant]
     Active Substance: MAGNESIUM CARBONATE
  8. CELLCEPT [Concomitant]
     Active Substance: MYCOPHENOLATE MOFETIL\MYCOPHENOLATE MOFETIL HYDROCHLORIDE
  9. LIDOCAINE/PRILOCAINE [Concomitant]
  10. PREDNISOLONE. [Concomitant]
     Active Substance: PREDNISOLONE
  11. LACTOBACILLUS [Concomitant]
     Active Substance: LACTOBACILLUS ACIDOPHILUS
  12. HIZENTRA [Suspect]
     Active Substance: HUMAN IMMUNOGLOBULIN G
     Indication: LUNG TRANSPLANT
     Dosage: 2 GM 10 ML VIAL
     Route: 058
  13. EPIPEN JR [Concomitant]
     Active Substance: EPINEPHRINE
  14. PREVACID [Concomitant]
     Active Substance: LANSOPRAZOLE
  15. HIZENTRA [Suspect]
     Active Substance: HUMAN IMMUNOGLOBULIN G
     Indication: ESSENTIAL HYPERTENSION
     Dosage: 2 GM 10 ML VIAL
     Route: 058

REACTIONS (1)
  - Respiratory tract infection viral [Unknown]

NARRATIVE: CASE EVENT DATE: 201602
